FAERS Safety Report 20637975 (Version 7)
Quarter: 2024Q1

REPORT INFORMATION
  Report Type: Spontaneous
  Country: US (occurrence: US)
  Receive Date: 20220325
  Receipt Date: 20240220
  Transmission Date: 20240410
  Serious: No
  Sender: FDA-Public Use
  Company Number: US-DSJP-DSU-2022-110423AA

PATIENT
  Sex: Female

DRUGS (5)
  1. TURALIO [Suspect]
     Active Substance: PEXIDARTINIB HYDROCHLORIDE
     Indication: Soft tissue neoplasm
     Dosage: 200 MG, EVERY MORNING
     Route: 048
     Dates: start: 20220314
  2. TURALIO [Suspect]
     Active Substance: PEXIDARTINIB HYDROCHLORIDE
     Indication: Connective tissue neoplasm
     Dosage: 400 MG, BID
     Route: 048
     Dates: start: 20220314
  3. TURALIO [Suspect]
     Active Substance: PEXIDARTINIB HYDROCHLORIDE
     Dosage: 400 MG, AT BEDTIME
     Route: 048
     Dates: start: 20220314
  4. TURALIO [Suspect]
     Active Substance: PEXIDARTINIB HYDROCHLORIDE
     Dosage: 200 MG, BID
     Route: 048
     Dates: start: 20220314
  5. TURALIO [Suspect]
     Active Substance: PEXIDARTINIB HYDROCHLORIDE
     Dosage: 125 MG, BID
     Route: 048
     Dates: start: 20220314

REACTIONS (9)
  - Pain [Recovered/Resolved]
  - Fatigue [Recovered/Resolved]
  - Taste disorder [Recovered/Resolved]
  - Hair colour changes [Not Recovered/Not Resolved]
  - Ageusia [Not Recovered/Not Resolved]
  - Product supply issue [Unknown]
  - Product use issue [Not Recovered/Not Resolved]
  - Product dose omission issue [Unknown]
  - Product dose omission issue [Recovered/Resolved]

NARRATIVE: CASE EVENT DATE: 20220101
